FAERS Safety Report 6400926-3 (Version None)
Quarter: 2009Q4

REPORT INFORMATION
  Report Type: 
  Country: None (occurrence: None)
  Receive Date: 20091009
  Receipt Date: 20090928
  Transmission Date: 20100525
  Serious: Yes (Hospitalization)
  Sender: FDA-Public Use
  Company Number: PAR_03198_2009

PATIENT
  Age: 37 Year
  Sex: Female
  Weight: 54.4316 kg

DRUGS (1)
  1. ADOXA /00055701/ 150 MG (NOT SPECIFIED) [Suspect]
     Indication: ACNE
     Dosage: 150 MG QD ORAL
     Route: 048

REACTIONS (3)
  - EYE DISORDER [None]
  - HEADACHE [None]
  - PRODUCT QUALITY ISSUE [None]
